FAERS Safety Report 15538569 (Version 1)
Quarter: 2018Q4

REPORT INFORMATION
  Report Type: Spontaneous
  Country: US (occurrence: US)
  Receive Date: 20181022
  Receipt Date: 20181022
  Transmission Date: 20190205
  Serious: Yes (Other)
  Sender: FDA-Public Use
  Company Number: None

PATIENT
  Age: 66 Year
  Sex: Male
  Weight: 73.8 kg

DRUGS (7)
  1. BICALUTAMIDE. [Concomitant]
     Active Substance: BICALUTAMIDE
  2. VITAMIN D [Concomitant]
     Active Substance: CHOLECALCIFEROL
  3. ERLEADA [Suspect]
     Active Substance: APALUTAMIDE
     Indication: PROSTATE CANCER
     Route: 048
     Dates: start: 20180730
  4. TUMS [Concomitant]
     Active Substance: CALCIUM CARBONATE
  5. LUPRON [Concomitant]
     Active Substance: LEUPROLIDE ACETATE
  6. CALCIUM ASCORBATE [Concomitant]
     Active Substance: CALCIUM ASCORBATE
  7. LISINOPRIL. [Concomitant]
     Active Substance: LISINOPRIL

REACTIONS (2)
  - Fatigue [None]
  - Decreased appetite [None]

NARRATIVE: CASE EVENT DATE: 20181019
